FAERS Safety Report 7777653-3 (Version None)
Quarter: 2011Q3

REPORT INFORMATION
  Report Type: 
  Country: None (occurrence: None)
  Receive Date: 20110922
  Receipt Date: 20110909
  Transmission Date: 20111222
  Serious: Yes (Death, Life-Threatening, Hospitalization, Disabling, Other)
  Sender: FDA-Public Use
  Company Number: US-2011-10125

PATIENT
  Age: 54 Year
  Sex: Male

DRUGS (18)
  1. ACETAMINOPHEN [Concomitant]
  2. MEROPENEM [Concomitant]
  3. PANTOPRAZOLE SODIUM [Concomitant]
  4. BUSULFAN [Suspect]
     Indication: STEM CELL TRANSPLANT
     Dosage: 69 MG MILLIGRAM(S), DAILY DOSE, INTRAVENOUS; 229 MG MILLIGRAM(S), DAILY DOSE, INTRAVENOUS
     Route: 042
     Dates: start: 20110210, end: 20110210
  5. BUSULFAN [Suspect]
     Indication: STEM CELL TRANSPLANT
     Dosage: 69 MG MILLIGRAM(S), DAILY DOSE, INTRAVENOUS; 229 MG MILLIGRAM(S), DAILY DOSE, INTRAVENOUS
     Route: 042
     Dates: start: 20110217, end: 20110220
  6. AMLODIPINE [Concomitant]
  7. FLUCONAZOLE [Concomitant]
  8. DEXTROMETHROPHAN (DEXTROMETHROPHAN) [Concomitant]
  9. ACYCLOVIR [Concomitant]
  10. FILGRASTIM (FILGRASTIM) [Concomitant]
  11. PSYLLIUM (PSYLLIUM) [Concomitant]
  12. INSULIN LISPRO (INSULIN LISPRO) [Concomitant]
  13. MULTIVITAMIN (ASCORBIC ACID, BIOTIN, CALCIUM PANTOTHENATE, CYANOCOBALA [Concomitant]
  14. LORATADINE [Concomitant]
  15. ROPINIROLE GENERICS (ROPINIROLE HYDROCHLORIDE) [Concomitant]
  16. VELCADE [Concomitant]
  17. FOLIC ACID [Concomitant]
  18. BENDARYL (DIPHENHYDRAMINE HYDROCHLORIDE) [Concomitant]

REACTIONS (10)
  - ACUTE RESPIRATORY DISTRESS SYNDROME [None]
  - HYPERBILIRUBINAEMIA [None]
  - ACIDOSIS [None]
  - HYPOTENSION [None]
  - RENAL TUBULAR NECROSIS [None]
  - ISCHAEMIC HEPATITIS [None]
  - RESPIRATORY FAILURE [None]
  - PULMONARY TOXICITY [None]
  - DIALYSIS [None]
  - RENAL FAILURE ACUTE [None]
